FAERS Safety Report 5981811-8 (Version None)
Quarter: 2008Q4

REPORT INFORMATION
  Report Type: 
  Country: None (occurrence: None)
  Receive Date: 20081205
  Receipt Date: 20081121
  Transmission Date: 20090506
  Serious: Yes (Hospitalization, Other)
  Sender: FDA-Public Use
  Company Number: GB-GENENTECH-271413

PATIENT
  Sex: Female

DRUGS (5)
  1. BEVACIZUMAB [Suspect]
     Indication: COLON CANCER
     Dosage: 575 MG, Q3W
     Route: 042
     Dates: start: 20081016
  2. CAPECITABINE [Suspect]
     Indication: COLON CANCER
     Dosage: 4500 MG, QD
     Route: 048
     Dates: start: 20081016, end: 20081029
  3. ACYCLOVIR [Concomitant]
     Indication: DRUG USE FOR UNKNOWN INDICATION
  4. OMEPRAZOLE [Concomitant]
     Indication: DRUG USE FOR UNKNOWN INDICATION
  5. ADCORTYL IN ORABASE [Concomitant]
     Indication: DRUG USE FOR UNKNOWN INDICATION

REACTIONS (2)
  - DISSEMINATED INTRAVASCULAR COAGULATION [None]
  - HAEMATOCHEZIA [None]
